FAERS Safety Report 22537409 (Version 1)
Quarter: 2023Q2

REPORT INFORMATION
  Report Type: Spontaneous
  Country: FR (occurrence: FR)
  Receive Date: 20230608
  Receipt Date: 20230608
  Transmission Date: 20230722
  Serious: Yes (Death)
  Sender: FDA-Public Use
  Company Number: None

PATIENT
  Age: 55 Year
  Sex: Female

DRUGS (6)
  1. PAROXETINE HYDROCHLORIDE [Suspect]
     Active Substance: PAROXETINE HYDROCHLORIDE
     Indication: Depression
     Dosage: 20 MILLIGRAM DAILY; 20MG/DAY
     Route: 065
     Dates: start: 20190919
  2. CYAMEMAZINE [Suspect]
     Active Substance: CYAMEMAZINE
     Indication: Schizophrenia
     Dosage: 25 DROPS IN THE MORNING, 30 DROPS AT NOON, 30 DROPS IN THE EVENING + IF NECESSARY 10 DROPS IF ANXIET
     Route: 065
     Dates: start: 20200820
  3. TEGRETOL [Suspect]
     Active Substance: CARBAMAZEPINE
     Indication: Schizophrenia
     Dosage: 2 DOSAGE FORMS DAILY; 1 MORNING AND 1 EVENING
     Route: 065
     Dates: start: 20131011
  4. XANAX [Suspect]
     Active Substance: ALPRAZOLAM
     Indication: Anxiety
     Dosage: 5 DOSAGE FORMS DAILY; 1 TABLET MORNING, 1 NOON, 1 EVENING AND 2 BEDTIME
     Route: 065
     Dates: start: 20200305
  5. CLOZAPINE [Suspect]
     Active Substance: CLOZAPINE
     Indication: Schizophrenia
     Dosage: 100MG MORNING, NOON, EVENING AND 1.5 AT BEDTIME
     Route: 065
     Dates: start: 20151021
  6. TRIMEPRAZINE [Concomitant]
     Active Substance: TRIMEPRAZINE
     Indication: Product used for unknown indication
     Route: 065

REACTIONS (1)
  - Choking [Fatal]

NARRATIVE: CASE EVENT DATE: 20230402
